FAERS Safety Report 8928028 (Version 1)
Quarter: 2012Q4

REPORT INFORMATION
  Report Type: Spontaneous
  Country: US (occurrence: None)
  Receive Date: 20121121
  Receipt Date: 20121121
  Transmission Date: 20130627
  Serious: No
  Sender: FDA-Public Use
  Company Number: None

PATIENT
  Age: 89 Year
  Sex: Male
  Weight: 63.5 kg

DRUGS (1)
  1. INSULIN [Suspect]
     Indication: DIABETES MELLITUS
     Dosage: 20 UNITS Other SQ
     Route: 058
     Dates: start: 20121008, end: 20121008

REACTIONS (3)
  - Unresponsive to stimuli [None]
  - Hypoglycaemia [None]
  - Hyperhidrosis [None]
